FAERS Safety Report 6472821-5 (Version None)
Quarter: 2009Q4

REPORT INFORMATION
  Report Type: 
  Country: None (occurrence: None)
  Receive Date: 20091201
  Receipt Date: 20091117
  Transmission Date: 20100525
  Serious: Yes (Other)
  Sender: FDA-Public Use
  Company Number: 2009AP004517

PATIENT
  Age: 76 Year
  Sex: Male

DRUGS (4)
  1. CIPROFLOXACIN HYDROCHLORIDE [Suspect]
     Indication: PNEUMONIA
     Dosage: 200 MG; UNKNOWN; BID 400 MG; UNKNOWN; IV; 1X
     Route: 042
  2. PRAVASTATIN [Concomitant]
  3. AMLODIPINE [Concomitant]
  4. TICARCILLIN (TICARCILLIN) [Concomitant]

REACTIONS (2)
  - AUTOIMMUNE THROMBOCYTOPENIA [None]
  - LUNG CONSOLIDATION [None]
